FAERS Safety Report 10674049 (Version 1)
Quarter: 2014Q4

REPORT INFORMATION
  Report Type: Report from Study
  Country: MX (occurrence: MX)
  Receive Date: 20141224
  Receipt Date: 20141224
  Transmission Date: 20150529
  Serious: Yes (Other)
  Sender: FDA-Public Use
  Company Number: PHHY2014MX168150

PATIENT
  Age: 71 Year
  Sex: Female

DRUGS (1)
  1. EXFORGE [Suspect]
     Active Substance: AMLODIPINE BESYLATE\VALSARTAN
     Indication: HYPERTENSION
     Dosage: 1 DF (160/5 UNITS NOT REPORTED), QD
     Route: 065

REACTIONS (5)
  - Central nervous system inflammation [Unknown]
  - Brain hypoxia [Unknown]
  - Eye disorder [Unknown]
  - Cerebral ischaemia [Unknown]
  - Amnesia [Unknown]

NARRATIVE: CASE EVENT DATE: 201409
